FAERS Safety Report 11509814 (Version 1)
Quarter: 2015Q3

REPORT INFORMATION
  Report Type: Spontaneous
  Country: US (occurrence: US)
  Receive Date: 20150915
  Receipt Date: 20150915
  Transmission Date: 20151125
  Serious: No
  Sender: FDA-Public Use
  Company Number: US-JNJFOC-20150803462

PATIENT
  Age: 71 Year
  Sex: Male
  Weight: 90.72 kg

DRUGS (5)
  1. ^ARTHRITIS MEDICINE^ [Concomitant]
     Indication: ARTHRITIS
     Route: 061
  2. TYLENOL EXTRA STRENGTH [Suspect]
     Active Substance: ACETAMINOPHEN
     Indication: ARTHRALGIA
     Dosage: 2 CAPLETS, VARIES/AS NECESSARY; TAKEN 3 TO 5 TIMES TOTAL
     Route: 048
  3. ZZZQUIL NIGHTTIME SLEEP-AID [Concomitant]
     Active Substance: DIPHENHYDRAMINE HYDROCHLORIDE
     Indication: SLEEP DISORDER THERAPY
     Route: 065
  4. UNSPECIFIED BLOOD PRESSURE MEDS [Concomitant]
     Indication: BLOOD PRESSURE MEASUREMENT
     Route: 065
  5. UNKNOWN CHOLESTEROL MEDICATION [Concomitant]
     Active Substance: UNSPECIFIED INGREDIENT
     Indication: BLOOD CHOLESTEROL
     Route: 065

REACTIONS (2)
  - Therapeutic response unexpected [Unknown]
  - Drug effect delayed [Unknown]
